FAERS Safety Report 12601878 (Version 1)
Quarter: 2016Q3

REPORT INFORMATION
  Report Type: Spontaneous
  Country: US (occurrence: None)
  Receive Date: 20160727
  Receipt Date: 20160727
  Transmission Date: 20161109
  Serious: Yes (Other)
  Sender: FDA-Public Use
  Company Number: None

PATIENT
  Age: 29 Year
  Sex: Female
  Weight: 45.81 kg

DRUGS (24)
  1. DOXYCYCLINE HYCLATE. [Suspect]
     Active Substance: DOXYCYCLINE HYCLATE
     Indication: ACNE
     Route: 048
     Dates: start: 20160623, end: 20160628
  2. ZYVOX [Concomitant]
     Active Substance: LINEZOLID
  3. EYPROHEPATIDINE [Concomitant]
  4. RETIN-A [Concomitant]
     Active Substance: TRETINOIN
  5. BACLOFEN. [Concomitant]
     Active Substance: BACLOFEN
  6. ACYCLOVIR. [Concomitant]
     Active Substance: ACYCLOVIR
  7. MULTIVITAMIN HAIR SKIN NAILS GUMMIES WITH BIOTIN CALCIUM [Concomitant]
  8. POLYETHYLENE GLYCOL [Concomitant]
     Active Substance: POLYETHYLENE GLYCOLS
  9. L-LYSINE [Concomitant]
     Active Substance: LYSINE
  10. FLUTICASONE [Concomitant]
     Active Substance: FLUTICASONE\FLUTICASONE PROPIONATE
  11. MONTELUKAST [Concomitant]
     Active Substance: MONTELUKAST SODIUM
  12. CLINDAMYCIN [Concomitant]
     Active Substance: CLINDAMYCIN\CLINDAMYCIN PHOSPHATE
  13. RANITIDINE. [Concomitant]
     Active Substance: RANITIDINE
  14. CLOBETASOL [Concomitant]
     Active Substance: CLOBETASOL
  15. ALBUTEROL. [Concomitant]
     Active Substance: ALBUTEROL
  16. CINNAMON PILLS [Concomitant]
  17. ACIDOPHILUS WITH PECTIN [Concomitant]
  18. KETOCONAZOLE. [Concomitant]
     Active Substance: KETOCONAZOLE
  19. KAYDECO [Concomitant]
  20. ZENPEP [Concomitant]
     Active Substance: PANCRELIPASE AMYLASE\PANCRELIPASE LIPASE\PANCRELIPASE PROTEASE
  21. MUPIROCIN. [Concomitant]
     Active Substance: MUPIROCIN
  22. PULMOZYME [Concomitant]
     Active Substance: DORNASE ALFA
  23. PROTONIX [Concomitant]
     Active Substance: PANTOPRAZOLE SODIUM
  24. AVAR [Concomitant]
     Active Substance: SULFACETAMIDE SODIUM\SULFUR

REACTIONS (4)
  - Paraesthesia [None]
  - Feeling hot [None]
  - Rash [None]
  - Photosensitivity reaction [None]

NARRATIVE: CASE EVENT DATE: 20160628
